FAERS Safety Report 10360037 (Version 1)
Quarter: 2014Q3

REPORT INFORMATION
  Report Type: Spontaneous
  Country: FR (occurrence: None)
  Receive Date: 20140730
  Receipt Date: 20140730
  Transmission Date: 20150326
  Serious: Yes (Hospitalization)
  Sender: FDA-Public Use
  Company Number: SP08099

PATIENT
  Sex: Female

DRUGS (1)
  1. OSMOPREP [Suspect]
     Active Substance: SODIUM PHOSPHATE, DIBASIC, ANHYDROUS\SODIUM PHOSPHATE, MONOBASIC, MONOHYDRATE
     Indication: BOWEL PREPARATION
     Route: 048

REACTIONS (2)
  - Tongue oedema [None]
  - Oedema mouth [None]
